FAERS Safety Report 4823562-9 (Version None)
Quarter: 2005Q4

REPORT INFORMATION
  Report Type: 
  Country: None (occurrence: None)
  Receive Date: 20051109
  Receipt Date: 20051020
  Transmission Date: 20060501
  Serious: Yes (Hospitalization)
  Sender: FDA-Public Use
  Company Number: JP-BRISTOL-MYERS SQUIBB COMPANY-13157763

PATIENT
  Age: 62 Year
  Sex: Male

DRUGS (3)
  1. GATIFLOXACIN [Suspect]
     Indication: PNEUMONIA
     Route: 048
     Dates: start: 20050927, end: 20051012
  2. EPHEDRA [Concomitant]
     Dates: start: 20050927, end: 20051004
  3. PL GRANULES [Concomitant]
     Route: 048
     Dates: start: 20051011, end: 20051012

REACTIONS (2)
  - LEUKOPENIA [None]
  - THROMBOCYTOPENIA [None]
